FAERS Safety Report 5478235-9 (Version None)
Quarter: 2007Q4

REPORT INFORMATION
  Report Type: 
  Country: None (occurrence: None)
  Receive Date: 20071005
  Receipt Date: 20070927
  Transmission Date: 20080405
  Serious: Yes (Hospitalization, Other)
  Sender: FDA-Public Use
  Company Number: PHHO2005BR12057

PATIENT
  Age: 61 Year
  Sex: Female
  Weight: 109 kg

DRUGS (12)
  1. DIOVAN HCT [Suspect]
     Indication: HYPERTENSION
     Dosage: 80/12.5 MG
     Route: 048
     Dates: start: 20050701, end: 20051201
  2. DIOVAN HCT [Suspect]
     Dosage: 80/12.5 MG
     Route: 048
     Dates: start: 20060212
  3. ATENOLOL [Suspect]
     Indication: HYPERTENSION
     Dosage: 50 MG
  4. INDAPAMIDE [Concomitant]
     Indication: HYPERTENSION
     Dates: end: 20050701
  5. CANDESARTAN CILEXETIL [Concomitant]
     Indication: HYPERTENSION
     Dates: end: 20050701
  6. DIOVAN [Suspect]
     Indication: BLOOD PRESSURE INCREASED
     Dosage: 80MG
     Dates: start: 20070601
  7. FORASEQ [Suspect]
     Dosage: BID
     Dates: start: 20070630
  8. APRESOLIN [Suspect]
     Indication: HYPERTENSION
     Dosage: 1 TABLET BID
     Route: 048
     Dates: start: 20070907, end: 20070926
  9. SOTALOL HCL [Concomitant]
     Indication: CARDIAC FIBRILLATION
  10. HIPERTIL [Concomitant]
  11. CAPTOPRIL [Concomitant]
  12. FRONTAL [Concomitant]

REACTIONS (19)
  - ANGINA PECTORIS [None]
  - CARDIAC FAILURE [None]
  - COUGH [None]
  - FEELING ABNORMAL [None]
  - HEADACHE [None]
  - HEART RATE INCREASED [None]
  - HYPERTENSION [None]
  - LUNG DISORDER [None]
  - LYMPHOCYTE COUNT INCREASED [None]
  - MALAISE [None]
  - NASOPHARYNGITIS [None]
  - NECK PAIN [None]
  - NERVOUSNESS [None]
  - NEUTROPHIL COUNT INCREASED [None]
  - PNEUMONIA [None]
  - PYREXIA [None]
  - SINUS DISORDER [None]
  - TENSION [None]
  - WHITE BLOOD CELL COUNT INCREASED [None]
